FAERS Safety Report 22230287 (Version 1)
Quarter: 2023Q2

REPORT INFORMATION
  Report Type: Spontaneous
  Country: US (occurrence: US)
  Receive Date: 20230419
  Receipt Date: 20230419
  Transmission Date: 20230721
  Serious: Yes (Hospitalization)
  Sender: FDA-Public Use
  Company Number: US-Teikoku Pharma USA-TPU2023-00238

PATIENT
  Sex: Female
  Weight: 81.720 kg

DRUGS (7)
  1. LIDODERM [Suspect]
     Active Substance: LIDOCAINE
     Indication: Breast cancer
     Route: 061
  2. LIDODERM [Suspect]
     Active Substance: LIDOCAINE
     Indication: Bone cancer
  3. LIDODERM [Suspect]
     Active Substance: LIDOCAINE
     Indication: Spinal disorder
  4. LIDOCAINE [Concomitant]
     Active Substance: LIDOCAINE
     Indication: Breast cancer
  5. LIDOCAINE [Concomitant]
     Active Substance: LIDOCAINE
     Indication: Bone cancer
  6. LIDOCAINE [Concomitant]
     Active Substance: LIDOCAINE
     Indication: Spinal disorder
  7. HYALURONATE SODIUM [Concomitant]
     Active Substance: HYALURONATE SODIUM
     Indication: Arthralgia

REACTIONS (5)
  - Incorrect dose administered [Unknown]
  - Arthralgia [Unknown]
  - Lymphoedema [Unknown]
  - Breast cancer metastatic [Unknown]
  - Incorrect product administration duration [Unknown]
